FAERS Safety Report 7602801-5 (Version None)
Quarter: 2011Q3

REPORT INFORMATION
  Report Type: 
  Country: None (occurrence: None)
  Receive Date: 20110711
  Receipt Date: 20110711
  Transmission Date: 20111222
  Serious: Yes (Life-Threatening, Hospitalization)
  Sender: FDA-Public Use
  Company Number: None

PATIENT
  Age: 66 Year
  Sex: Male
  Weight: 113.8 kg

DRUGS (2)
  1. LISINOPRIL [Suspect]
     Indication: HYPERTENSION
     Dates: start: 20110401, end: 20110601
  2. ALLOPURINOL [Suspect]
     Indication: GOUT
     Dates: start: 20110501, end: 20110601

REACTIONS (7)
  - HYPERGLYCAEMIA [None]
  - DRUG INTOLERANCE [None]
  - PNEUMONIA [None]
  - SKIN EXFOLIATION [None]
  - RASH [None]
  - HYPERNATRAEMIA [None]
  - COAGULOPATHY [None]
